FAERS Safety Report 9692297 (Version 2)
Quarter: 2013Q4

REPORT INFORMATION
  Report Type: Report from Study
  Country: US (occurrence: US)
  Receive Date: 20131118
  Receipt Date: 20131119
  Transmission Date: 20140711
  Serious: Yes (Other)
  Sender: FDA-Public Use
  Company Number: US-ROCHE-1302453

PATIENT
  Sex: Female

DRUGS (4)
  1. ACTEMRA [Suspect]
     Indication: PRODUCT USED FOR UNKNOWN INDICATION
     Route: 042
     Dates: start: 20130904
  2. ACTEMRA [Suspect]
     Route: 042
     Dates: start: 20131002
  3. TYLENOL [Concomitant]
     Route: 065
     Dates: start: 20130905
  4. SOLU-MEDROL [Concomitant]
     Route: 065
     Dates: start: 20131003

REACTIONS (3)
  - Rash erythematous [Recovering/Resolving]
  - Burning sensation [Recovering/Resolving]
  - Drug ineffective [Unknown]
